FAERS Safety Report 5598630-7 (Version None)
Quarter: 2007Q4

REPORT INFORMATION
  Report Type: 
  Country: None (occurrence: None)
  Receive Date: 20071226
  Receipt Date: 20071009
  Transmission Date: 20080405
  Serious: No
  Sender: FDA-Public Use
  Company Number: 2007PV033558

PATIENT
  Age: 65 Year
  Sex: Female

DRUGS (6)
  1. SYMLIN [Suspect]
     Indication: TYPE 2 DIABETES MELLITUS
     Dosage: 60 MCG; QAM; SC, 120 MCG; QPM; SC, 120 MCG; TID; SC, 60 MCG; SC
     Route: 058
     Dates: start: 20071002, end: 20071004
  2. SYMLIN [Suspect]
     Indication: TYPE 2 DIABETES MELLITUS
     Dosage: 60 MCG; QAM; SC, 120 MCG; QPM; SC, 120 MCG; TID; SC, 60 MCG; SC
     Route: 058
     Dates: start: 20071005, end: 20071006
  3. SYMLIN [Suspect]
     Indication: TYPE 2 DIABETES MELLITUS
     Dosage: 60 MCG; QAM; SC, 120 MCG; QPM; SC, 120 MCG; TID; SC, 60 MCG; SC
     Route: 058
     Dates: start: 20071006
  4. SYMLIN [Suspect]
     Indication: TYPE 2 DIABETES MELLITUS
     Dosage: 60 MCG; QAM; SC, 120 MCG; QPM; SC, 120 MCG; TID; SC, 60 MCG; SC
     Route: 058
     Dates: start: 20071006
  5. HUMULIN N [Concomitant]
  6. HUMULIN R [Concomitant]

REACTIONS (3)
  - BLOOD GLUCOSE INCREASED [None]
  - DIABETES MELLITUS INADEQUATE CONTROL [None]
  - NAUSEA [None]
